FAERS Safety Report 14825484 (Version 5)
Quarter: 2018Q3

REPORT INFORMATION
  Report Type: Report from Study
  Country: None (occurrence: TR)
  Receive Date: 20180430
  Receipt Date: 20180727
  Transmission Date: 20181010
  Serious: Yes (Death, Hospitalization, Other)
  Sender: FDA-Public Use
  Company Number: TR-ABBVIE-18K-161-2336700-00

PATIENT
  Age: 63 Year
  Sex: Female
  Weight: 80 kg

DRUGS (6)
  1. PK?MERZ [Concomitant]
     Active Substance: AMANTADINE
     Indication: PARKINSON^S DISEASE
     Dosage: 3X2
     Route: 048
  2. AYRA [Concomitant]
     Indication: HYPERTENSION
     Route: 048
  3. DUODOPA [Suspect]
     Active Substance: CARBIDOPA\LEVODOPA
     Dosage: MORNING DOSE: 4.20 ML?CONTINUOUS DOSE: 2.10 ML?EXTRA DOSE: 1.50 ML
     Route: 050
  4. GLIFOR [Concomitant]
     Active Substance: METFORMIN HYDROCHLORIDE
     Indication: DIABETES MELLITUS
     Route: 048
  5. DUODOPA [Suspect]
     Active Substance: CARBIDOPA\LEVODOPA
     Indication: PARKINSON^S DISEASE
     Dosage: MORNING DOSE: 4.50 ML?CONTINUOUS DOSE: 2.50 ML?EXTRA DOSE: 1.50 ML
     Route: 050
     Dates: start: 20150527
  6. INCURIA [Concomitant]
     Indication: DIABETES MELLITUS
     Route: 048

REACTIONS (10)
  - C-reactive protein increased [Not Recovered/Not Resolved]
  - Weight decreased [Not Recovered/Not Resolved]
  - Neck mass [Not Recovered/Not Resolved]
  - Metastatic lymphoma [Fatal]
  - General physical health deterioration [Not Recovered/Not Resolved]
  - Stoma site odour [Not Recovered/Not Resolved]
  - Asthenia [Not Recovered/Not Resolved]
  - Dyspnoea [Not Recovered/Not Resolved]
  - Decreased appetite [Not Recovered/Not Resolved]
  - Stoma site discharge [Not Recovered/Not Resolved]

NARRATIVE: CASE EVENT DATE: 201711
